FAERS Safety Report 17835226 (Version 1)
Quarter: 2020Q2

REPORT INFORMATION
  Report Type: Spontaneous
  Country: GB (occurrence: GB)
  Receive Date: 20200528
  Receipt Date: 20200528
  Transmission Date: 20200714
  Serious: Yes (Hospitalization)
  Sender: FDA-Public Use
  Company Number: PHHY2019GB144032

PATIENT
  Age: 65 Year
  Sex: Female

DRUGS (52)
  1. FLUCLOXACILLIN [Concomitant]
     Active Substance: FLUCLOXACILLIN
     Route: 048
     Dates: start: 20180316, end: 20180330
  2. FLUCLOXACILLIN [Concomitant]
     Active Substance: FLUCLOXACILLIN
     Route: 048
     Dates: start: 20181008, end: 20181017
  3. METRONIDAZOLE. [Concomitant]
     Active Substance: METRONIDAZOLE
     Indication: PRODUCT USED FOR UNKNOWN INDICATION
     Dosage: 1500 MG, QD
     Route: 042
     Dates: start: 20180606, end: 20180607
  4. ALTEPLASE. [Concomitant]
     Active Substance: ALTEPLASE
     Route: 065
     Dates: start: 20181005, end: 20181007
  5. CAPECITABINE. [Suspect]
     Active Substance: CAPECITABINE
     Indication: HER2 POSITIVE BREAST CANCER
     Dosage: 4600 MG, QD
     Route: 048
     Dates: start: 20180228, end: 20180313
  6. CAPECITABINE. [Suspect]
     Active Substance: CAPECITABINE
     Dosage: 2150 MG
     Route: 048
     Dates: start: 20180321, end: 20180403
  7. CAPECITABINE. [Suspect]
     Active Substance: CAPECITABINE
     Dosage: 2300 MG
     Route: 048
     Dates: start: 20180228, end: 20180313
  8. FLUCLOXACILLIN [Concomitant]
     Active Substance: FLUCLOXACILLIN
     Dosage: 2000 MG, QD
     Route: 048
     Dates: start: 20181008, end: 20181017
  9. FLUCLOXACILLIN [Concomitant]
     Active Substance: FLUCLOXACILLIN
     Route: 042
     Dates: start: 20190107, end: 20190110
  10. DALTEPARIN [Concomitant]
     Active Substance: DALTEPARIN
     Dosage: 2.5 MG, QD
     Route: 058
     Dates: start: 20180215, end: 20180216
  11. DOMPERIDONE [Concomitant]
     Active Substance: DOMPERIDONE
     Indication: PRODUCT USED FOR UNKNOWN INDICATION
     Dosage: 30 MG, QD
     Route: 048
     Dates: start: 20180228, end: 20180313
  12. COCODAMOL [Concomitant]
     Active Substance: ACETAMINOPHEN\CODEINE PHOSPHATE
     Route: 048
     Dates: start: 20180215
  13. ORAMORPH [Concomitant]
     Active Substance: MORPHINE SULFATE
     Dosage: 5 MG, QD
     Route: 048
     Dates: start: 20180604, end: 20180605
  14. BENZYDAMINE [Concomitant]
     Active Substance: BENZYDAMINE
     Indication: PRODUCT USED FOR UNKNOWN INDICATION
     Dosage: 10 ML CM3UP TO 3HOURLY AS REQUIRED
     Route: 061
  15. LAXIDO [Concomitant]
     Active Substance: POLYETHYLENE GLYCOL 3350\POTASSIUM CHLORIDE\SODIUM BICARBONATE\SODIUM CHLORIDE
     Indication: PRODUCT USED FOR UNKNOWN INDICATION
     Route: 048
  16. CYCLIZINE [Concomitant]
     Active Substance: CYCLIZINE
     Indication: PRODUCT USED FOR UNKNOWN INDICATION
     Dosage: 50 MG, QD
     Route: 048
     Dates: start: 20180216, end: 20180217
  17. CAPECITABINE. [Suspect]
     Active Substance: CAPECITABINE
     Dosage: 4300 MG, UNK
     Route: 048
     Dates: start: 20180321, end: 20180403
  18. CAPECITABINE. [Suspect]
     Active Substance: CAPECITABINE
     Dosage: 2000 MG, QD
     Route: 048
     Dates: start: 20180411, end: 20180605
  19. FLUCLOXACILLIN [Concomitant]
     Active Substance: FLUCLOXACILLIN
     Route: 048
     Dates: start: 20190117
  20. FLUCLOXACILLIN [Concomitant]
     Active Substance: FLUCLOXACILLIN
     Route: 048
     Dates: start: 20180924, end: 20181004
  21. DALTEPARIN [Concomitant]
     Active Substance: DALTEPARIN
     Indication: EMBOLISM
     Dosage: 5000 IU, QD
     Route: 058
     Dates: start: 20180606, end: 20180607
  22. AZATHIOPRINE. [Concomitant]
     Active Substance: AZATHIOPRINE
     Indication: PRODUCT USED FOR UNKNOWN INDICATION
     Dosage: 150 MG, QD
     Route: 048
     Dates: start: 201001, end: 20180228
  23. PARACETAMOL [Concomitant]
     Active Substance: ACETAMINOPHEN
     Route: 048
     Dates: start: 20180129
  24. ALTEPLASE. [Concomitant]
     Active Substance: ALTEPLASE
     Route: 065
     Dates: start: 20190107, end: 20190110
  25. LETROZOLE. [Suspect]
     Active Substance: LETROZOLE
     Indication: HER2 POSITIVE BREAST CANCER
     Dosage: 2.5 MG, QD
     Route: 048
     Dates: start: 20170718, end: 20180228
  26. FLUCLOXACILLIN [Concomitant]
     Active Substance: FLUCLOXACILLIN
     Dosage: 2000 MG, QD
     Route: 048
     Dates: start: 20190117
  27. FLUCLOXACILLIN [Concomitant]
     Active Substance: FLUCLOXACILLIN
     Dosage: 8 G, QD
     Route: 042
     Dates: start: 20180606, end: 20180608
  28. TRASTUZUMAB. [Suspect]
     Active Substance: TRASTUZUMAB
     Indication: BREAST CANCER METASTATIC
     Dosage: 600 MG, TIW
     Route: 058
     Dates: start: 20180228
  29. FLUCLOXACILLIN [Concomitant]
     Active Substance: FLUCLOXACILLIN
     Indication: INFECTIOUS PLEURAL EFFUSION
     Dosage: 4 G, QD
     Route: 042
     Dates: start: 20181005, end: 20181008
  30. FLUCLOXACILLIN [Concomitant]
     Active Substance: FLUCLOXACILLIN
     Dosage: 2000 MG, QD
     Route: 048
  31. FLUCLOXACILLIN [Concomitant]
     Active Substance: FLUCLOXACILLIN
     Dosage: 8 G, QD
     Route: 042
     Dates: start: 20180606, end: 20180608
  32. FLUCLOXACILLIN [Concomitant]
     Active Substance: FLUCLOXACILLIN
     Dosage: 2000 MG, QD
     Route: 048
     Dates: start: 20180316, end: 20180330
  33. FLUCLOXACILLIN [Concomitant]
     Active Substance: FLUCLOXACILLIN
     Route: 048
     Dates: start: 20190110, end: 20190116
  34. BENZYDAMINE [Concomitant]
     Active Substance: BENZYDAMINE
     Route: 061
     Dates: start: 20180320, end: 20180627
  35. PARACETAMOL [Concomitant]
     Active Substance: ACETAMINOPHEN
     Indication: PRODUCT USED FOR UNKNOWN INDICATION
     Dosage: 1 G, QD
     Route: 048
  36. COCODAMOL [Concomitant]
     Active Substance: ACETAMINOPHEN\CODEINE PHOSPHATE
     Indication: PRODUCT USED FOR UNKNOWN INDICATION
     Dosage: 530 MG, PRN
     Route: 048
  37. TAZOCIN [Concomitant]
     Active Substance: PIPERACILLIN SODIUM\TAZOBACTAM SODIUM
     Indication: PRODUCT USED FOR UNKNOWN INDICATION
     Dosage: 18 G, QD
     Route: 042
     Dates: start: 20180603, end: 20180606
  38. EXEMESTANE. [Suspect]
     Active Substance: EXEMESTANE
     Indication: HER2 POSITIVE BREAST CANCER
     Dosage: 25 MG, QD
     Route: 048
     Dates: start: 20180920
  39. FLUCLOXACILLIN [Concomitant]
     Active Substance: FLUCLOXACILLIN
     Dosage: 4 G, QD
     Route: 048
     Dates: start: 20190110, end: 20190116
  40. FLUCLOXACILLIN [Concomitant]
     Active Substance: FLUCLOXACILLIN
     Route: 048
     Dates: start: 201806, end: 201806
  41. FLUCLOXACILLIN [Concomitant]
     Active Substance: FLUCLOXACILLIN
     Route: 048
     Dates: start: 20181018, end: 20181115
  42. ALTEPLASE. [Concomitant]
     Active Substance: ALTEPLASE
     Indication: INFECTIOUS PLEURAL EFFUSION
     Dosage: 20 MG, QD
     Route: 065
     Dates: start: 20190107, end: 20190110
  43. ALTEPLASE. [Concomitant]
     Active Substance: ALTEPLASE
     Dosage: 40 MG, QD
     Route: 065
     Dates: start: 20181005, end: 20181007
  44. LOPERAMIDE [Concomitant]
     Active Substance: LOPERAMIDE
     Indication: PRODUCT USED FOR UNKNOWN INDICATION
     Dosage: 2 MG, QD
     Route: 048
  45. LOPERAMIDE [Concomitant]
     Active Substance: LOPERAMIDE
     Route: 048
     Dates: start: 20180320
  46. CAPECITABINE. [Suspect]
     Active Substance: CAPECITABINE
     Dosage: 2150 MG
     Route: 048
     Dates: start: 20180411, end: 20180605
  47. FLUCLOXACILLIN [Concomitant]
     Active Substance: FLUCLOXACILLIN
     Dosage: 4 G, QD
     Route: 042
     Dates: start: 20190107, end: 20190110
  48. FLUCLOXACILLIN [Concomitant]
     Active Substance: FLUCLOXACILLIN
     Dosage: 2000 MG, QD
     Route: 048
     Dates: start: 20180316, end: 20180330
  49. FLUCLOXACILLIN [Concomitant]
     Active Substance: FLUCLOXACILLIN
     Route: 042
     Dates: start: 20181005, end: 20181008
  50. ORAMORPH [Concomitant]
     Active Substance: MORPHINE SULFATE
     Indication: ANALGESIC THERAPY
     Dosage: 5 MG, QD
     Route: 048
     Dates: start: 20180215, end: 20180216
  51. PULMOZYME [Concomitant]
     Active Substance: DORNASE ALFA
     Indication: INFECTIOUS PLEURAL EFFUSION
     Route: 065
     Dates: start: 20181005, end: 20181007
  52. PULMOZYME [Concomitant]
     Active Substance: DORNASE ALFA
     Dosage: 5 MG
     Route: 065
     Dates: start: 20190107, end: 20190110

REACTIONS (3)
  - Fatigue [Not Recovered/Not Resolved]
  - Palmar-plantar erythrodysaesthesia syndrome [Recovered/Resolved]
  - Device related infection [Recovered/Resolved with Sequelae]

NARRATIVE: CASE EVENT DATE: 20180320
